FAERS Safety Report 9371604 (Version 2)
Quarter: 2013Q3

REPORT INFORMATION
  Report Type: Spontaneous
  Country: BR (occurrence: BR)
  Receive Date: 20130627
  Receipt Date: 20130829
  Transmission Date: 20140515
  Serious: Yes (Other)
  Sender: FDA-Public Use
  Company Number: PHHY2013BR065281

PATIENT
  Age: 46 Year
  Sex: Male
  Weight: 70 kg

DRUGS (4)
  1. TASIGNA [Suspect]
     Indication: CHRONIC MYELOID LEUKAEMIA
     Dosage: 200 MG, BID ( 1 IN THE MORNING AND 1 AT NIGHT)
     Route: 048
  2. SIMETICONE [Concomitant]
     Indication: FLATULENCE
     Dosage: 1 DF, PRN (EVERY 4 HOURS)
     Route: 048
  3. BUSCOPAN [Concomitant]
     Indication: ABDOMINAL PAIN
     Dosage: 1 DF, PRN (EVERY 8 HOURS)
     Route: 048
  4. TEBONIN [Concomitant]

REACTIONS (6)
  - Deafness [Recovered/Resolved]
  - Ear discomfort [Recovered/Resolved]
  - Musculoskeletal discomfort [Recovered/Resolved]
  - Pallor [Recovered/Resolved]
  - Dizziness [Recovered/Resolved]
  - White blood cell count increased [Unknown]
